FAERS Safety Report 4973887-1 (Version None)
Quarter: 2006Q2

REPORT INFORMATION
  Report Type: 
  Country: None (occurrence: None)
  Receive Date: 20060417
  Receipt Date: 20060327
  Transmission Date: 20061013
  Serious: Yes (Hospitalization)
  Sender: FDA-Public Use
  Company Number: GB-BRISTOL-MYERS SQUIBB COMPANY-13326921

PATIENT
  Age: 77 Year
  Sex: Female

DRUGS (2)
  1. SINEMET [Suspect]
     Indication: PARKINSON'S DISEASE
  2. FERROUS SULFATE TAB [Interacting]
     Indication: BLOOD IRON DECREASED

REACTIONS (3)
  - BLOOD IRON DECREASED [None]
  - DRUG INTERACTION [None]
  - PARKINSONISM [None]
